FAERS Safety Report 17910038 (Version 6)
Quarter: 2020Q3

REPORT INFORMATION
  Report Type: Report from Study
  Country: None (occurrence: US)
  Receive Date: 20200617
  Receipt Date: 20200827
  Transmission Date: 20201103
  Serious: Yes (Hospitalization, Other)
  Sender: FDA-Public Use
  Company Number: US-ABBVIE-20P-163-3439370-00

PATIENT
  Age: 57 Year
  Sex: Female
  Weight: 54.5 kg

DRUGS (32)
  1. VENETOCLAX. [Suspect]
     Active Substance: VENETOCLAX
     Route: 048
     Dates: start: 20200211, end: 20200611
  2. CHOLECALCIFEROL [Concomitant]
     Active Substance: CHOLECALCIFEROL
     Indication: VITAMIN D DEFICIENCY
     Route: 048
     Dates: start: 20181205
  3. POTASSIUM CHLORIDE ER [Concomitant]
     Active Substance: POTASSIUM CHLORIDE
     Indication: HYPOKALAEMIA
     Route: 048
     Dates: start: 20191010, end: 20191010
  4. BUTMETANIDE [Concomitant]
     Route: 048
     Dates: start: 20200307, end: 20200308
  5. VENETOCLAX. [Suspect]
     Active Substance: VENETOCLAX
     Indication: ACUTE MYELOID LEUKAEMIA
     Route: 048
     Dates: start: 20190925, end: 20190925
  6. VENETOCLAX. [Suspect]
     Active Substance: VENETOCLAX
     Route: 048
     Dates: start: 20200722
  7. SULFAMETHOXAZOLE?TRIMETHOPRIM DS [Concomitant]
     Active Substance: SULFAMETHOXAZOLE\TRIMETHOPRIM
     Indication: ANTIFUNGAL PROPHYLAXIS
     Route: 048
     Dates: start: 20190703, end: 20200618
  8. AMILORIDE [Concomitant]
     Active Substance: AMILORIDE
     Route: 048
     Dates: start: 20200309
  9. POSACONAZOLE [Concomitant]
     Active Substance: POSACONAZOLE
     Indication: ANTIFUNGAL PROPHYLAXIS
     Route: 048
     Dates: start: 20200210
  10. RITUXIMAB. [Concomitant]
     Active Substance: RITUXIMAB
     Indication: NEPHROTIC SYNDROME
     Route: 042
     Dates: start: 20200110, end: 20200131
  11. MELATONIN [Concomitant]
     Active Substance: MELATONIN
     Indication: INSOMNIA
     Route: 048
     Dates: start: 20190918, end: 20200609
  12. DEXAMETHASONE ORAL SOLUTION [Concomitant]
     Indication: GRAFT VERSUS HOST DISEASE
     Route: 061
     Dates: start: 20200113
  13. ALBUMIN [Concomitant]
     Active Substance: ALBUMIN HUMAN
     Indication: NEPHROTIC SYNDROME
     Route: 042
     Dates: start: 20200608, end: 20200608
  14. VENETOCLAX. [Suspect]
     Active Substance: VENETOCLAX
     Route: 048
     Dates: start: 20190927, end: 20200210
  15. PREDNISONE. [Concomitant]
     Active Substance: PREDNISONE
     Indication: NEPHROTIC SYNDROME
     Route: 048
     Dates: start: 20191017
  16. AMILORIDE [Concomitant]
     Active Substance: AMILORIDE
     Route: 048
     Dates: start: 20200307, end: 20200308
  17. RITUXIMAB. [Concomitant]
     Active Substance: RITUXIMAB
     Route: 042
     Dates: start: 20200608, end: 20200608
  18. ALLOPURINOL. [Concomitant]
     Active Substance: ALLOPURINOL
     Indication: PROPHYLAXIS
     Route: 048
     Dates: start: 20190913, end: 20191021
  19. AMILORIDE [Concomitant]
     Active Substance: AMILORIDE
     Indication: NEPHROTIC SYNDROME
     Route: 048
     Dates: start: 20191121
  20. GILTERITINIB [Suspect]
     Active Substance: GILTERITINIB
     Route: 048
     Dates: start: 20200722
  21. PREDNISONE. [Concomitant]
     Active Substance: PREDNISONE
     Indication: PLATELET COUNT DECREASED
  22. POTASSIUM CHLORIDE ER [Concomitant]
     Active Substance: POTASSIUM CHLORIDE
     Route: 048
     Dates: start: 20191012, end: 20191015
  23. POTASSIUM CHLORIDE ER [Concomitant]
     Active Substance: POTASSIUM CHLORIDE
     Route: 048
     Dates: start: 20191202
  24. VENETOCLAX. [Suspect]
     Active Substance: VENETOCLAX
     Route: 048
     Dates: start: 20190926, end: 20190926
  25. ACYCLOVIR. [Concomitant]
     Active Substance: ACYCLOVIR
     Indication: ANTIVIRAL PROPHYLAXIS
     Route: 048
     Dates: start: 20171019
  26. LANSOPRAZOLE. [Concomitant]
     Active Substance: LANSOPRAZOLE
     Indication: GASTROINTESTINAL DISORDER
     Route: 048
     Dates: start: 20180828
  27. MAGNESIUM PLUS PROTEIN [Concomitant]
     Indication: HYPOMAGNESAEMIA
     Route: 048
     Dates: start: 20191106, end: 20200609
  28. BUTMETANIDE [Concomitant]
     Indication: NEPHROTIC SYNDROME
     Route: 048
     Dates: start: 20191121
  29. BUTMETANIDE [Concomitant]
     Route: 048
     Dates: start: 20200309
  30. NYSTATIN 100000U/ML [Concomitant]
     Indication: GRAFT VERSUS HOST DISEASE
     Route: 061
     Dates: start: 20190113
  31. GILTERITINIB [Suspect]
     Active Substance: GILTERITINIB
     Indication: ACUTE MYELOID LEUKAEMIA
     Route: 048
     Dates: start: 20190924, end: 20200611
  32. CYANOCOBALAMIN. [Concomitant]
     Active Substance: CYANOCOBALAMIN
     Indication: SUPPLEMENTATION THERAPY
     Route: 048
     Dates: start: 20190318

REACTIONS (4)
  - Embolism [Not Recovered/Not Resolved]
  - Pneumonia [Recovered/Resolved]
  - Sepsis [Recovered/Resolved]
  - Endocarditis [Recovered/Resolved]

NARRATIVE: CASE EVENT DATE: 20200608
